FAERS Safety Report 6601823-0 (Version None)
Quarter: 2010Q1

REPORT INFORMATION
  Report Type: 
  Country: None (occurrence: None)
  Receive Date: 20100218
  Receipt Date: 20090930
  Transmission Date: 20100710
  Serious: Yes (Hospitalization)
  Sender: FDA-Public Use
  Company Number: 2009AC000010

PATIENT
  Sex: Male

DRUGS (24)
  1. DIGOXIN [Suspect]
     Dosage: PO
     Route: 048
     Dates: start: 20060101
  2. DIGOXIN [Suspect]
     Dosage: 250 MCG;QD; PO
     Route: 048
     Dates: start: 20080209
  3. TRAVATAN [Concomitant]
  4. WARFARIN [Concomitant]
  5. SPIRONOLACTONE [Concomitant]
  6. METOPROLOL [Concomitant]
  7. BENAZEPRIL HYDROCHLORIDE [Concomitant]
  8. CARTIA XT [Concomitant]
  9. FUROSEMIDE [Concomitant]
  10. NOVOLIN [Concomitant]
  11. METFORMIN HYDROCHLORIDE [Concomitant]
  12. MECLIZINE [Concomitant]
  13. TRICOR [Concomitant]
  14. ISOSORBIDE [Concomitant]
  15. ALPHAGAN [Concomitant]
  16. PRAVASTATIN [Concomitant]
  17. LOTREL [Concomitant]
  18. NOVOLIN [Concomitant]
  19. POTASSIUM [Concomitant]
  20. GLUCOPHAGE [Concomitant]
  21. HUMULIN R [Concomitant]
  22. PAVACHOL [Concomitant]
  23. TERAZOSIN HYDROCHLORIDE [Concomitant]
  24. ASPIRIN [Concomitant]

REACTIONS (14)
  - AORTIC ARTERIOSCLEROSIS [None]
  - ATRIAL FIBRILLATION [None]
  - CARDIAC FAILURE CONGESTIVE [None]
  - CORONARY ARTERY OCCLUSION [None]
  - ECONOMIC PROBLEM [None]
  - EJECTION FRACTION DECREASED [None]
  - LEFT VENTRICULAR DYSFUNCTION [None]
  - LEFT VENTRICULAR HYPERTROPHY [None]
  - MITRAL VALVE INCOMPETENCE [None]
  - MULTIPLE INJURIES [None]
  - RENAL FAILURE CHRONIC [None]
  - TREATMENT NONCOMPLIANCE [None]
  - TRICUSPID VALVE INCOMPETENCE [None]
  - WEIGHT INCREASED [None]
